FAERS Safety Report 6755648-6 (Version None)
Quarter: 2010Q2

REPORT INFORMATION
  Report Type: 
  Country: None (occurrence: None)
  Receive Date: 20100604
  Receipt Date: 20100325
  Transmission Date: 20101027
  Serious: Yes (Other)
  Sender: FDA-Public Use
  Company Number: US-BAYER-201011897NA

PATIENT
  Age: 34 Year
  Sex: Female
  Weight: 74 kg

DRUGS (10)
  1. YAZ [Suspect]
     Indication: ACNE
     Route: 048
     Dates: start: 20071101, end: 20080401
  2. YASMIN [Suspect]
     Indication: DRUG USE FOR UNKNOWN INDICATION
     Route: 048
  3. OCELLA [Suspect]
     Indication: DRUG USE FOR UNKNOWN INDICATION
     Route: 048
  4. AMOXICILLIN [Concomitant]
  5. IBUPROFEN [Concomitant]
  6. NAPROXEN [Concomitant]
  7. CLARINEX [Concomitant]
  8. PATANOL [Concomitant]
  9. ORTHO TRI-CYCLEN [Concomitant]
  10. DICYCLOMINE [Concomitant]

REACTIONS (7)
  - ABDOMINAL PAIN UPPER [None]
  - BACK PAIN [None]
  - BILIARY COLIC [None]
  - CHOLECYSTITIS CHRONIC [None]
  - CYST [None]
  - FLANK PAIN [None]
  - POLLAKIURIA [None]
